FAERS Safety Report 15487067 (Version 1)
Quarter: 2018Q4

REPORT INFORMATION
  Report Type: Spontaneous
  Country: US (occurrence: US)
  Receive Date: 20181003
  Receipt Date: 20181003
  Transmission Date: 20190205
  Serious: Yes (Other)
  Sender: FDA-Public Use
  Company Number: None

PATIENT
  Age: 70 Year
  Sex: Female
  Weight: 70.31 kg

DRUGS (10)
  1. VITAMIN E [Concomitant]
     Active Substance: .ALPHA.-TOCOPHEROL
  2. VIT D-3 [Concomitant]
  3. CANCURIAN [Concomitant]
  4. LUTEIN [Concomitant]
     Active Substance: LUTEIN
  5. NEUTROGENA HEALTHY SKIN FACE BROAD SPECTRUM SPF15 [Suspect]
     Active Substance: AVOBENZONE\OCTISALATE\OCTOCRYLENE\OXYBENZONE
     Indication: DRY SKIN
     Dosage: ?          QUANTITY:LOTION - APPLIED T;?
     Route: 061
     Dates: start: 20180823, end: 20180823
  6. MULTI-VIT [Concomitant]
     Active Substance: VITAMINS
  7. NASONEX [Concomitant]
     Active Substance: MOMETASONE FUROATE
  8. VITAMIN C [Concomitant]
     Active Substance: ASCORBIC ACID
  9. TURMERIC [Concomitant]
     Active Substance: HERBALS\TURMERIC
  10. ZEAXANTHIN [Concomitant]
     Active Substance: ZEAXANTHIN

REACTIONS (3)
  - Burning sensation [None]
  - Periorbital swelling [None]
  - Erythema [None]

NARRATIVE: CASE EVENT DATE: 20180823
